FAERS Safety Report 17686343 (Version 3)
Quarter: 2020Q3

REPORT INFORMATION
  Report Type: Report from Study
  Country: None (occurrence: US)
  Receive Date: 20200420
  Receipt Date: 20200813
  Transmission Date: 20201102
  Serious: Yes (Hospitalization, Other)
  Sender: FDA-Public Use
  Company Number: US-ABBVIE-18K-163-3116561-00

PATIENT
  Age: 84 Year
  Sex: Male

DRUGS (4)
  1. IMBRUVICA [Suspect]
     Active Substance: IBRUTINIB
     Indication: CHRONIC LYMPHOCYTIC LEUKAEMIA RECURRENT
     Route: 048
     Dates: start: 20180817
  2. IMBRUVICA [Suspect]
     Active Substance: IBRUTINIB
     Indication: CHRONIC LYMPHOCYTIC LEUKAEMIA
     Route: 048
  3. IMBRUVICA [Suspect]
     Active Substance: IBRUTINIB
     Dosage: IMBRUVICA CAPSULES? 140MG? 2 CAPSULES DAILY ALTERNATING WITH 3 CAPSULES DAILY
     Route: 048
     Dates: start: 201808
  4. IMBRUVICA [Suspect]
     Active Substance: IBRUTINIB
     Dosage: IMBRUVICA CAPSULES? 140MG? 2 CAPSULES DAILY ALTERNATING WITH 3 CAPSULES DAILY
     Route: 048

REACTIONS (7)
  - Fluid retention [Unknown]
  - Pleural effusion [Unknown]
  - Pleural effusion [Unknown]
  - Pneumonia [Unknown]
  - Hospitalisation [Unknown]
  - Nasopharyngitis [Unknown]
  - Pulmonary fibrosis [Unknown]

NARRATIVE: CASE EVENT DATE: 20200803
